FAERS Safety Report 10932445 (Version 2)
Quarter: 2015Q2

REPORT INFORMATION
  Report Type: Spontaneous
  Country: US (occurrence: US)
  Receive Date: 20150320
  Receipt Date: 20150526
  Transmission Date: 20150821
  Serious: No
  Sender: FDA-Public Use
  Company Number: US-JNJFOC-20130303639

PATIENT

DRUGS (4)
  1. LITHIUM. [Suspect]
     Active Substance: LITHIUM
     Indication: PRODUCT USED FOR UNKNOWN INDICATION
     Dosage: SERUM LEVEL }/= 0.5 MEQ/L
     Route: 065
  2. LAMOTRIGINE. [Suspect]
     Active Substance: LAMOTRIGINE
     Indication: PRODUCT USED FOR UNKNOWN INDICATION
     Dosage: }/=100MG/DAY
     Route: 065
  3. RISPERIDONE. [Suspect]
     Active Substance: RISPERIDONE
     Indication: MANIA
     Dosage: INITIALLY STARTED WITH 1MG/DAY AND INCREASED AS CLINICALLY INDICATED TO 8MG/DAY
     Route: 065
  4. DIVALPROEX [Suspect]
     Active Substance: DIVALPROEX SODIUM
     Indication: PRODUCT USED FOR UNKNOWN INDICATION
     Dosage: }/=45UG/ML
     Route: 065

REACTIONS (17)
  - Headache [Unknown]
  - Tremor [Unknown]
  - Insomnia [Unknown]
  - Fatigue [Unknown]
  - Constipation [Unknown]
  - Drug ineffective [Unknown]
  - Oedema [Unknown]
  - Gastrointestinal disorder [Unknown]
  - Somnolence [Unknown]
  - Diarrhoea [Unknown]
  - Abdominal distension [Unknown]
  - Weight increased [Unknown]
  - Hypoaesthesia [Unknown]
  - Treatment noncompliance [Unknown]
  - Gait disturbance [Unknown]
  - Musculoskeletal stiffness [Unknown]
  - Sexual dysfunction [Unknown]
